FAERS Safety Report 8823391 (Version 1)
Quarter: 2012Q4

REPORT INFORMATION
  Report Type: Report from Study
  Country: US (occurrence: US)
  Receive Date: 20121003
  Receipt Date: 20121003
  Transmission Date: 20130627
  Serious: Yes (Hospitalization)
  Sender: FDA-Public Use
  Company Number: US-ASTRAZENECA-2012SE74167

PATIENT
  Age: 31600 Day
  Sex: Male
  Weight: 83 kg

DRUGS (10)
  1. ATACAND [Suspect]
     Indication: HYPERTENSION
     Route: 048
     Dates: start: 20100127, end: 20110710
  2. AMLODIPINE [Concomitant]
  3. ASPIRIN [Concomitant]
  4. LIPITOR [Concomitant]
  5. COLACE [Concomitant]
  6. IRON [Concomitant]
  7. MULTIVITAMINS [Concomitant]
  8. TOPROL XL [Concomitant]
  9. PROTONIX [Concomitant]
  10. COUMADIN [Concomitant]

REACTIONS (1)
  - Syncope [Recovered/Resolved]
